FAERS Safety Report 5868784-3 (Version None)
Quarter: 2008Q3

REPORT INFORMATION
  Report Type: 
  Country: None (occurrence: None)
  Receive Date: 20080828
  Receipt Date: 20080813
  Transmission Date: 20090109
  Serious: Yes (Death)
  Sender: FDA-Public Use
  Company Number: ENC200800058

PATIENT
  Sex: Male

DRUGS (10)
  1. ARGATROBAN [Suspect]
     Indication: HEPARIN-INDUCED THROMBOCYTOPENIA
     Dosage: 1 MG/ML, UNK, OTHER
     Dates: start: 20080326
  2. LEVOPHED [Concomitant]
  3. CEFTRIAXONE [Concomitant]
  4. TPN [Concomitant]
  5. DARBEPOETIN ALFA (DARBEPOETIN ALFA) [Concomitant]
  6. FENTANYL-100 [Concomitant]
  7. INSULIN (INSULIN) [Concomitant]
  8. INSULIN GLARGINE (INSULIN GLARGINE) [Concomitant]
  9. VERSED [Concomitant]
  10. VANCOMYCIN [Concomitant]

REACTIONS (1)
  - COAGULATION TIME PROLONGED [None]
